FAERS Safety Report 11256448 (Version 3)
Quarter: 2015Q3

REPORT INFORMATION
  Report Type: Spontaneous
  Country: US (occurrence: US)
  Receive Date: 20150709
  Receipt Date: 20150710
  Transmission Date: 20151125
  Serious: Yes (Hospitalization, Other)
  Sender: FDA-Public Use
  Company Number: US-GLAXOSMITHKLINE-US2015GSK091104

PATIENT
  Sex: Female

DRUGS (3)
  1. HYCAMTIN [Suspect]
     Active Substance: TOPOTECAN HYDROCHLORIDE
     Dosage: UNK
  2. HYCAMTIN [Suspect]
     Active Substance: TOPOTECAN HYDROCHLORIDE
     Indication: LUNG NEOPLASM MALIGNANT
     Dosage: 1 MG, TID
  3. HYCAMTIN [Suspect]
     Active Substance: TOPOTECAN HYDROCHLORIDE
     Indication: LUNG NEOPLASM MALIGNANT
     Dosage: 3 MG, U
     Dates: start: 20150610

REACTIONS (4)
  - Nausea [Unknown]
  - Diarrhoea [Unknown]
  - Malaise [Unknown]
  - Hospitalisation [Unknown]
